FAERS Safety Report 9753112 (Version 1)
Quarter: 2013Q4

REPORT INFORMATION
  Report Type: Spontaneous
  Country: US (occurrence: US)
  Receive Date: 20131213
  Receipt Date: 20131213
  Transmission Date: 20140711
  Serious: No
  Sender: FDA-Public Use
  Company Number: US-GILEAD-2010-0026980

PATIENT
  Age: 52 Year
  Sex: Female

DRUGS (3)
  1. LETAIRIS [Suspect]
     Indication: PULMONARY ARTERIAL HYPERTENSION
     Route: 048
  2. LEVOTHYROXIN [Concomitant]
     Indication: HYPOTHYROIDISM
  3. MULTIVITAMIN [Concomitant]

REACTIONS (1)
  - Oedema peripheral [Not Recovered/Not Resolved]
